FAERS Safety Report 25048367 (Version 1)
Quarter: 2025Q1

REPORT INFORMATION
  Report Type: Report from Study
  Country: CO (occurrence: CO)
  Receive Date: 20250307
  Receipt Date: 20250307
  Transmission Date: 20250408
  Serious: Yes (Other)
  Sender: ABBVIE
  Company Number: CO-JNJFOC-20250304492

PATIENT
  Age: 77 Year
  Sex: Female
  Weight: 67 kg

DRUGS (1)
  1. IMBRUVICA [Suspect]
     Active Substance: IBRUTINIB
     Indication: Chronic lymphocytic leukaemia
     Route: 048
     Dates: start: 20220719, end: 20250228

REACTIONS (4)
  - Retinopexy [Unknown]
  - Diarrhoea [Unknown]
  - Lymphadenopathy [Unknown]
  - Vomiting [Unknown]

NARRATIVE: CASE EVENT DATE: 20250212
